FAERS Safety Report 20376230 (Version 2)
Quarter: 2022Q1

REPORT INFORMATION
  Report Type: Spontaneous
  Country: TW (occurrence: TW)
  Receive Date: 20220125
  Receipt Date: 20220203
  Transmission Date: 20220423
  Serious: Yes (Hospitalization)
  Sender: FDA-Public Use
  Company Number: TW-CHUGAI-2022000972

PATIENT
  Age: 57 Year
  Sex: Female
  Weight: 49.8 kg

DRUGS (18)
  1. ACTEMRA [Suspect]
     Active Substance: TOCILIZUMAB
     Indication: Rheumatoid arthritis
     Dosage: 162 MILLIGRAM, ONCE/2WEEKS
     Route: 058
     Dates: start: 20210210, end: 20211229
  2. PLAQUENIL [Concomitant]
     Active Substance: HYDROXYCHLOROQUINE SULFATE
     Dosage: 200 MILLIGRAM, BID
     Route: 048
     Dates: start: 20171220
  3. FORFLOW [PENTOXIFYLLINE] [Concomitant]
     Dosage: 400 MILLIGRAM, HS
     Route: 048
     Dates: start: 20200729
  4. BOKEY [Concomitant]
     Dosage: 100 MILLIGRAM, QOD
     Route: 048
     Dates: start: 20201021
  5. BOKEY [Concomitant]
     Dosage: 100 MILLIGRAM, TIW
     Route: 048
  6. FOLIC ACID [Concomitant]
     Active Substance: FOLIC ACID
     Dosage: 5 MILLIGRAM, QD
     Route: 048
     Dates: start: 20171220
  7. WEIMOK [Concomitant]
     Dosage: 20 MILLIGRAM, QD
     Route: 048
     Dates: start: 20201110
  8. ARHEUMA [Concomitant]
     Dosage: 20 MILLIGRAM, BIW
     Route: 048
     Dates: start: 20211218
  9. ARHEUMA [Concomitant]
     Dosage: 20 MILLIGRAM, AS ORDER
     Route: 048
  10. ARHEUMA [Concomitant]
     Dosage: 20 MILLIGRAM, TIW
     Route: 048
  11. METHOTREXATE [Concomitant]
     Active Substance: METHOTREXATE
     Dosage: 5 MILLIGRAM, AS ORDER
     Route: 048
  12. COMIRNATY [Concomitant]
     Active Substance: TOZINAMERAN
     Dosage: 0.3 MILLILITER, SINGLE
     Dates: start: 20210927
  13. COMIRNATY [Concomitant]
     Active Substance: TOZINAMERAN
     Dosage: 0.3 MILLILITER, SINGLE
     Dates: start: 20211110
  14. MYCOSTATIN [Concomitant]
     Active Substance: NYSTATIN
     Dosage: 4 MILLILITER, BID
     Route: 048
  15. VALTREX [Concomitant]
     Active Substance: VALACYCLOVIR HYDROCHLORIDE
     Dosage: 1000 MILLIGRAM, BID
     Route: 048
  16. ALPRAZOLAM [Concomitant]
     Active Substance: ALPRAZOLAM
     Dosage: 2.5 MILLIGRAM, PRN
     Route: 048
  17. CLEOCIN T [Concomitant]
     Active Substance: CLINDAMYCIN PHOSPHATE
     Dosage: 1 DOSAGE FORM, BID
     Route: 003
  18. TETRACYCLINE [Concomitant]
     Active Substance: TETRACYCLINE
     Dosage: 1 DOSAGE FORM, AS ORDER
     Route: 003

REACTIONS (1)
  - Acral lentiginous melanoma [Not Recovered/Not Resolved]

NARRATIVE: CASE EVENT DATE: 20220107
